FAERS Safety Report 9815012 (Version 1)
Quarter: 2014Q1

REPORT INFORMATION
  Report Type: Spontaneous
  Country: GB (occurrence: GB)
  Receive Date: 20140114
  Receipt Date: 20140114
  Transmission Date: 20141002
  Serious: Yes (Disabling)
  Sender: FDA-Public Use
  Company Number: GB-MERCK-1401GBR003811

PATIENT
  Age: 71 Year
  Sex: Male
  Weight: 84.82 kg

DRUGS (8)
  1. SITAGLIPTIN PHOSPHATE [Suspect]
     Dosage: UNK
     Route: 048
     Dates: start: 20131202
  2. ASPIRIN [Concomitant]
     Dosage: UNK
     Dates: start: 20130729
  3. ATENOLOL [Concomitant]
     Dosage: UNK
     Dates: start: 20130729
  4. ATORVASTATIN [Concomitant]
     Dosage: UNK
     Dates: start: 20130729
  5. E45 [Concomitant]
     Dosage: UNK
     Dates: start: 20131211
  6. GLICLAZIDE [Concomitant]
     Dosage: UNK
     Dates: start: 20130729
  7. NITROGLYCERIN [Concomitant]
     Dosage: UNK
     Dates: start: 20131108, end: 20131206
  8. PERINDOPRIL ERBUMINE [Concomitant]
     Dosage: UNK
     Dates: start: 20130729

REACTIONS (2)
  - Dyspnoea [Recovered/Resolved]
  - Pain [Recovered/Resolved]
